FAERS Safety Report 23014274 (Version 1)
Quarter: 2023Q4

REPORT INFORMATION
  Report Type: Spontaneous
  Country: AT (occurrence: AT)
  Receive Date: 20231002
  Receipt Date: 20231002
  Transmission Date: 20240109
  Serious: Yes (Other)
  Sender: FDA-Public Use
  Company Number: AT-ABBVIE-5330175

PATIENT
  Age: 55 Year
  Sex: Female
  Weight: 56 kg

DRUGS (22)
  1. VENETOCLAX [Suspect]
     Active Substance: VENETOCLAX
     Indication: Acute myeloid leukaemia
     Dosage: TIME INTERVAL: TOTAL: RAMP-UP WITHIN 3 D UNDER OBSERVATION
     Route: 048
     Dates: start: 20230407, end: 20230407
  2. VENETOCLAX [Suspect]
     Active Substance: VENETOCLAX
     Indication: Acute myeloid leukaemia
     Dosage: TIME INTERVAL: TOTAL: RAMP-UP WITHIN 3 D UNDER OBSERVATION
     Route: 048
     Dates: start: 20230406, end: 20230406
  3. VENETOCLAX [Suspect]
     Active Substance: VENETOCLAX
     Indication: Acute myeloid leukaemia
     Route: 048
     Dates: start: 20230425, end: 20230429
  4. VENETOCLAX [Suspect]
     Active Substance: VENETOCLAX
     Indication: Acute myeloid leukaemia
     Dosage: TARGET DOSE
     Route: 048
     Dates: start: 20230408, end: 20230421
  5. VENETOCLAX [Suspect]
     Active Substance: VENETOCLAX
     Indication: Acute myeloid leukaemia
     Route: 048
     Dates: start: 20230508, end: 20230606
  6. VENETOCLAX [Suspect]
     Active Substance: VENETOCLAX
     Indication: Acute myeloid leukaemia
     Route: 048
     Dates: start: 20230421, end: 20230425
  7. VENETOCLAX [Suspect]
     Active Substance: VENETOCLAX
     Indication: Acute myeloid leukaemia
     Route: 048
     Dates: start: 20230606
  8. MEROPENEM [Concomitant]
     Active Substance: MEROPENEM
     Indication: Antibiotic therapy
  9. ONDANSETRON [Concomitant]
     Active Substance: ONDANSETRON
     Indication: Prophylaxis of nausea and vomiting
     Route: 048
     Dates: start: 20230406, end: 20230415
  10. ALBUMINE HUMAN [Concomitant]
     Indication: Hypoalbuminaemia
     Dates: start: 20230327
  11. LEVOFLOXACIN [Concomitant]
     Active Substance: LEVOFLOXACIN
     Indication: Antibiotic therapy
  12. PANTOPRAZOLE SODIUM [Concomitant]
     Active Substance: PANTOPRAZOLE SODIUM
     Indication: Gastrooesophageal reflux disease
     Dates: start: 20230327
  13. Kalioral [Concomitant]
     Indication: Hypokalaemia
     Dates: start: 20230327
  14. SULFAMETHOXAZOLE\TRIMETHOPRIM [Concomitant]
     Active Substance: SULFAMETHOXAZOLE\TRIMETHOPRIM
     Indication: Antibiotic therapy
     Dosage: (SULFAMETHOXAZOL 800 MG/ TRIMETHOPRIM 160 MG) 1-0-1
     Route: 048
     Dates: start: 20230403
  15. CEFEPIME HYDROCHLORIDE [Concomitant]
     Active Substance: CEFEPIME HYDROCHLORIDE
     Indication: Antibiotic therapy
     Dosage: POWDER
  16. ENOXAPARIN SODIUM [Concomitant]
     Active Substance: ENOXAPARIN SODIUM
     Indication: Thrombosis prophylaxis
     Dosage: 4000 IE/0,4 ML
     Route: 058
     Dates: start: 20230425
  17. VIDAZA [Concomitant]
     Active Substance: AZACITIDINE
     Indication: Acute myeloid leukaemia
     Dosage: RED. TO 75%, ONLY 1X 90 MG INJECTION
     Route: 058
     Dates: start: 20230606
  18. VIDAZA [Concomitant]
     Active Substance: AZACITIDINE
     Indication: Acute myeloid leukaemia
     Dosage: D1-D2 AND D6-D10: 75 MG/M?, DOSE:120 MG, DIVIDED INTO 2 INJECTIONS OF 60 MG EACH, PLANNED 6 CYCLES
     Route: 058
  19. VIDAZA [Concomitant]
     Active Substance: AZACITIDINE
     Indication: Acute myeloid leukaemia
     Dosage: 75 MG/M?/D (D1-D7)
     Route: 058
     Dates: start: 20230406
  20. NICOTINELL [Concomitant]
     Active Substance: NICOTINE
     Indication: Smoking cessation therapy
     Dates: start: 20230327
  21. XYLOCAINE VISCOUS [Concomitant]
     Active Substance: LIDOCAINE HYDROCHLORIDE
     Indication: Local anaesthesia
     Dates: start: 20230328
  22. MYCOSTATIN [Concomitant]
     Active Substance: NYSTATIN
     Indication: Antifungal treatment
     Dates: start: 20230328

REACTIONS (10)
  - Febrile neutropenia [Unknown]
  - Tuberculosis [Unknown]
  - Drug level decreased [Unknown]
  - Constipation [Unknown]
  - Platelet count increased [Unknown]
  - Liver function test abnormal [Unknown]
  - Blood uric acid increased [Unknown]
  - Cytopenia [Unknown]
  - Pneumonia [Unknown]
  - Drug interaction [Unknown]

NARRATIVE: CASE EVENT DATE: 20230412
